FAERS Safety Report 20703717 (Version 1)
Quarter: 2022Q2

REPORT INFORMATION
  Report Type: Spontaneous
  Country: IN (occurrence: IN)
  Receive Date: 20220413
  Receipt Date: 20220413
  Transmission Date: 20220721
  Serious: Yes (Other)
  Sender: FDA-Public Use
  Company Number: IN-HETERO-HET2022IN00829

PATIENT
  Age: 23 Year
  Sex: Female
  Weight: 28 kg

DRUGS (3)
  1. EFAVIRENZ [Suspect]
     Active Substance: EFAVIRENZ
     Indication: HIV infection
     Dosage: 600 MG
     Route: 065
     Dates: start: 2017
  2. TENOFOVIR [Concomitant]
     Active Substance: TENOFOVIR
     Indication: HIV infection
     Dosage: 300 MG
     Route: 065
     Dates: start: 2017
  3. LAMIVUDINE [Concomitant]
     Active Substance: LAMIVUDINE
     Indication: HIV infection
     Dosage: 150 MG
     Route: 065
     Dates: start: 2017

REACTIONS (3)
  - Encephalopathy [Recovering/Resolving]
  - Toxicity to various agents [Unknown]
  - Cerebellar ataxia [Recovering/Resolving]
